FAERS Safety Report 17387482 (Version 1)
Quarter: 2020Q1

REPORT INFORMATION
  Report Type: Spontaneous
  Country: US (occurrence: US)
  Receive Date: 20200206
  Receipt Date: 20200206
  Transmission Date: 20200409
  Serious: No
  Sender: FDA-Public Use
  Company Number: US-RADIUS HEALTH INC.-2019US004594

PATIENT
  Age: 55 Year
  Sex: Female

DRUGS (1)
  1. TYMLOS [Suspect]
     Active Substance: ABALOPARATIDE
     Indication: OSTEOPOROSIS POSTMENOPAUSAL
     Dosage: 80 MCG, UNK
     Route: 058
     Dates: start: 201911, end: 201911

REACTIONS (8)
  - Chest pain [Unknown]
  - Facial pain [Unknown]
  - Breast pain [Unknown]
  - Decreased appetite [Unknown]
  - Abdominal pain upper [Not Recovered/Not Resolved]
  - Back pain [Unknown]
  - Hypersensitivity [Unknown]
  - Rash pruritic [Unknown]

NARRATIVE: CASE EVENT DATE: 201911
